FAERS Safety Report 5861606-6 (Version None)
Quarter: 2008Q3

REPORT INFORMATION
  Report Type: 
  Country: None (occurrence: None)
  Receive Date: 20080827
  Receipt Date: 20080619
  Transmission Date: 20090109
  Serious: No
  Sender: FDA-Public Use
  Company Number: US-ABBOTT-08P-163-0458619-00

PATIENT
  Sex: Female

DRUGS (3)
  1. NIASPAN [Suspect]
     Indication: BLOOD CHOLESTEROL INCREASED
     Dates: start: 20080515, end: 20080527
  2. NIASPAN [Suspect]
     Dates: start: 20080528, end: 20080528
  3. NIASPAN [Suspect]
     Dates: start: 20080529, end: 20080618

REACTIONS (4)
  - EYELID OEDEMA [None]
  - HEADACHE [None]
  - LIP SWELLING [None]
  - RASH GENERALISED [None]
